FAERS Safety Report 25874140 (Version 2)
Quarter: 2025Q4

REPORT INFORMATION
  Report Type: Report from Study
  Country: EG (occurrence: EG)
  Receive Date: 20251002
  Receipt Date: 20251007
  Transmission Date: 20260118
  Serious: Yes (Other)
  Sender: ROCHE
  Company Number: EG-ROCHE-10000399961

PATIENT

DRUGS (2)
  1. RITUXIMAB [Suspect]
     Active Substance: RITUXIMAB
     Indication: Multiple sclerosis
     Route: 042
  2. OCRELIZUMAB [Suspect]
     Active Substance: OCRELIZUMAB
     Indication: Multiple sclerosis
     Route: 042

REACTIONS (10)
  - Off label use [Unknown]
  - Hypogammaglobulinaemia [Unknown]
  - Infection [Unknown]
  - Neoplasm [Unknown]
  - Neoplasm malignant [Unknown]
  - Cervix carcinoma [Unknown]
  - Bladder cancer [Unknown]
  - Malignant melanoma [Unknown]
  - Endometrial cancer [Unknown]
  - Breast cancer [Unknown]
